FAERS Safety Report 15567981 (Version 2)
Quarter: 2018Q4

REPORT INFORMATION
  Report Type: Spontaneous
  Country: TW (occurrence: TW)
  Receive Date: 20181030
  Receipt Date: 20181121
  Transmission Date: 20190205
  Serious: Yes (Death, Hospitalization, Other)
  Sender: FDA-Public Use
  Company Number: TW-GILEAD-2018-0371181

PATIENT
  Age: 76 Year
  Sex: Female

DRUGS (2)
  1. RIBAVIRIN. [Suspect]
     Active Substance: RIBAVIRIN
     Indication: CHRONIC HEPATITIS C
     Dosage: UNK
     Route: 065
     Dates: start: 20180911
  2. HARVONI [Suspect]
     Active Substance: LEDIPASVIR\SOFOSBUVIR
     Indication: CHRONIC HEPATITIS C
     Dosage: UNK
     Route: 065
     Dates: start: 20180911

REACTIONS (12)
  - Anaemia [Unknown]
  - Sepsis [Fatal]
  - Renal failure [Fatal]
  - Blood glucose increased [Unknown]
  - Necrotising fasciitis [Fatal]
  - Hepatic cirrhosis [Fatal]
  - Hyperkalaemia [Fatal]
  - Respiratory failure [Unknown]
  - Pyrexia [Unknown]
  - Urinary tract infection [Fatal]
  - Gastrointestinal haemorrhage [Fatal]
  - Lethargy [Unknown]

NARRATIVE: CASE EVENT DATE: 20180917
